FAERS Safety Report 13340412 (Version 3)
Quarter: 2018Q4

REPORT INFORMATION
  Report Type: Spontaneous
  Country: US (occurrence: US)
  Receive Date: 20170316
  Receipt Date: 20181109
  Transmission Date: 20190204
  Serious: No
  Sender: FDA-Public Use
  Company Number: US-PFIZER INC-2017109131

PATIENT
  Sex: Male

DRUGS (1)
  1. LYRICA [Suspect]
     Active Substance: PREGABALIN
     Dosage: UNK

REACTIONS (2)
  - Insomnia [Unknown]
  - Withdrawal syndrome [Unknown]
